FAERS Safety Report 9444170 (Version 1)
Quarter: 2013Q3

REPORT INFORMATION
  Report Type: Spontaneous
  Country: GB (occurrence: GB)
  Receive Date: 20130807
  Receipt Date: 20130807
  Transmission Date: 20140515
  Serious: Yes (Other)
  Sender: FDA-Public Use
  Company Number: GB-ROCHE-1257602

PATIENT
  Sex: Male

DRUGS (3)
  1. RIBAVIRIN [Suspect]
     Indication: HEPATITIS C
     Route: 048
  2. PEGINTERFERON ALFA-2B [Suspect]
     Indication: HEPATITIS C
     Route: 058
  3. INCIVO [Suspect]
     Indication: HEPATITIS C
     Route: 048

REACTIONS (3)
  - Ataxia [Unknown]
  - Hepatic cirrhosis [Unknown]
  - Rash [Unknown]
